FAERS Safety Report 16320347 (Version 1)
Quarter: 2019Q2

REPORT INFORMATION
  Report Type: Spontaneous
  Country: US (occurrence: US)
  Receive Date: 20190515
  Receipt Date: 20190515
  Transmission Date: 20190711
  Serious: Yes (Life-Threatening, Disabling)
  Sender: FDA-Public Use
  Company Number: None

PATIENT
  Age: 56 Year
  Sex: Female
  Weight: 88.65 kg

DRUGS (18)
  1. FYCOMPA [Suspect]
     Active Substance: PERAMPANEL
     Indication: EPILEPSY
     Dosage: ?          QUANTITY:1 TABLET(S);?
     Route: 048
     Dates: start: 20190327, end: 20190512
  2. CYBERONICS VNS DEVICE [Concomitant]
  3. FLONASE [Concomitant]
     Active Substance: FLUTICASONE PROPIONATE
  4. VITAMIN D3 [Concomitant]
     Active Substance: CHOLECALCIFEROL
  5. ZINC. [Concomitant]
     Active Substance: ZINC
  6. SYMBICORT [Concomitant]
     Active Substance: BUDESONIDE\FORMOTEROL FUMARATE DIHYDRATE
  7. ODANSETRON [Concomitant]
     Active Substance: ONDANSETRON
  8. TURMERIC [Concomitant]
     Active Substance: HERBALS\TURMERIC
  9. TOPAMAX [Concomitant]
     Active Substance: TOPIRAMATE
  10. APTIOM [Concomitant]
     Active Substance: ESLICARBAZEPINE ACETATE
  11. ATIVAN [Concomitant]
     Active Substance: LORAZEPAM
  12. FLAXSEED [Concomitant]
     Active Substance: FLAX SEED
  13. VITAMIN B COMPLEX [Concomitant]
     Active Substance: CYANOCOBALAMIN\DEXPANTHENOL\NIACINAMIDE\PYRIDOXINE HYDROCHLORIDE\RIBOFLAVIN 5^-PHOSPHATE SODIUM\THIAMINE HYDROCHLORIDE\VITAMIN B COMPLEX
  14. VITAMIN C [Concomitant]
     Active Substance: ASCORBIC ACID
  15. BIOTIN [Concomitant]
     Active Substance: BIOTIN
  16. FOLIC ACID. [Concomitant]
     Active Substance: FOLIC ACID
  17. CHROMIUM [Concomitant]
     Active Substance: CHROMIC CHLORIDE\CHROMIUM
  18. MAGNESIUM [Concomitant]
     Active Substance: MAGNESIUM

REACTIONS (7)
  - Drug hypersensitivity [None]
  - Insurance issue [None]
  - Drug interaction [None]
  - Hostility [None]
  - Anger [None]
  - Product prescribing error [None]
  - Diarrhoea [None]

NARRATIVE: CASE EVENT DATE: 20190327
